FAERS Safety Report 16678370 (Version 4)
Quarter: 2020Q1

REPORT INFORMATION
  Report Type: Report from Study
  Country: GB (occurrence: GB)
  Receive Date: 20190807
  Receipt Date: 20200115
  Transmission Date: 20200409
  Serious: Yes (Hospitalization)
  Sender: FDA-Public Use
  Company Number: GB-B.I. PHARMACEUTICALS,INC./RIDGEFIELD-2019-BI-030066

PATIENT
  Age: 42 Year
  Sex: Male
  Weight: 70 kg

DRUGS (16)
  1. AFATINIB [Suspect]
     Active Substance: AFATINIB
     Indication: CHORDOMA
     Route: 048
     Dates: start: 20190701
  2. FORTISIP [Concomitant]
     Active Substance: CARBOHYDRATES\FATTY ACIDS\MINERALS\PROTEIN\VITAMINS
     Indication: MOUTH ULCERATION
     Dosage: DAILY DOSE 3 BOTTLES
     Route: 048
  3. TESTOSTERONE. [Concomitant]
     Active Substance: TESTOSTERONE
     Indication: HYPOPITUITARISM
     Route: 030
     Dates: start: 20191004
  4. DIFFLAM [Concomitant]
     Active Substance: BENZYDAMINE HYDROCHLORIDE
     Indication: MOUTH ULCERATION
     Route: 061
     Dates: start: 20190710
  5. CODEINE [Concomitant]
     Active Substance: CODEINE
     Indication: ORAL PAIN
     Route: 048
     Dates: start: 20190710
  6. DIFFLAM [Concomitant]
     Active Substance: BENZYDAMINE HYDROCHLORIDE
     Route: 048
     Dates: start: 20190710
  7. FLEXITOL [Concomitant]
     Indication: PRODUCT USED FOR UNKNOWN INDICATION
     Route: 061
     Dates: start: 20191001
  8. AFATINIB [Suspect]
     Active Substance: AFATINIB
     Route: 048
     Dates: start: 20190717, end: 20191129
  9. OXETACAINE [Concomitant]
     Active Substance: OXETHAZAINE
     Route: 048
  10. PARACETAMOL [Concomitant]
     Active Substance: ACETAMINOPHEN
     Indication: PAIN
     Route: 048
     Dates: start: 20190712
  11. DIFFLAM [Concomitant]
     Active Substance: BENZYDAMINE HYDROCHLORIDE
     Route: 061
     Dates: start: 20190710
  12. CLINDAMYCIN. [Concomitant]
     Active Substance: CLINDAMYCIN
     Indication: SKIN DISORDER
     Route: 048
     Dates: start: 20190923
  13. OXETACAINE [Concomitant]
     Active Substance: OXETHAZAINE
     Indication: MOUTH ULCERATION
     Route: 061
     Dates: start: 20190710
  14. OXETACAINE [Concomitant]
     Active Substance: OXETHAZAINE
     Route: 048
  15. DOXYCYCLINE. [Concomitant]
     Active Substance: DOXYCYCLINE
     Indication: DERMATITIS ACNEIFORM
     Route: 048
     Dates: start: 20191021
  16. TESTOGEL [Concomitant]
     Active Substance: TESTOSTERONE
     Indication: BLOOD TESTOSTERONE DECREASED
     Route: 061
     Dates: start: 20190823

REACTIONS (6)
  - Face injury [Recovered/Resolved]
  - Headache [Not Recovered/Not Resolved]
  - Hypopituitarism [Recovered/Resolved]
  - Dizziness [Recovered/Resolved]
  - Fall [Not Recovered/Not Resolved]
  - Fall [Recovered/Resolved]

NARRATIVE: CASE EVENT DATE: 20190711
